FAERS Safety Report 10460970 (Version 2)
Quarter: 2014Q3

REPORT INFORMATION
  Report Type: Spontaneous
  Country: JP (occurrence: None)
  Receive Date: 20140916
  Receipt Date: 20140929
  Transmission Date: 20150326
  Serious: Yes (Other)
  Sender: FDA-Public Use
  Company Number: INC-14-000228

PATIENT
  Age: 14 Year
  Sex: Female

DRUGS (1)
  1. CRAVIT [Suspect]
     Active Substance: LEVOFLOXACIN
     Indication: CHALAZION
     Route: 061
     Dates: start: 20140904, end: 20140904

REACTIONS (6)
  - Anaphylactoid reaction [None]
  - Conjunctival oedema [None]
  - Eye pain [None]
  - Foreign body sensation in eyes [None]
  - Eyelid oedema [None]
  - Anaphylactic shock [None]

NARRATIVE: CASE EVENT DATE: 20140904
